FAERS Safety Report 24397948 (Version 2)
Quarter: 2024Q4

REPORT INFORMATION
  Report Type: Spontaneous
  Country: US (occurrence: US)
  Receive Date: 20241004
  Receipt Date: 20241119
  Transmission Date: 20250114
  Serious: No
  Sender: PFIZER
  Company Number: US-PFIZER INC-PV202400128416

PATIENT
  Age: 61 Year
  Sex: Male

DRUGS (3)
  1. INLYTA [Suspect]
     Active Substance: AXITINIB
     Dosage: 5 MG
  2. MIRALAX [Suspect]
     Active Substance: POLYETHYLENE GLYCOL 3350
     Dosage: UNK
  3. HYDROCODONE [Concomitant]
     Active Substance: HYDROCODONE
     Indication: Neoplasm
     Dosage: UNK

REACTIONS (17)
  - Headache [Unknown]
  - Chills [Unknown]
  - Influenza like illness [Unknown]
  - Dysphonia [Unknown]
  - Dry skin [Unknown]
  - Heart rate decreased [Unknown]
  - Hypoaesthesia [Unknown]
  - Aphonia [Unknown]
  - Blood pressure increased [Unknown]
  - Migraine [Unknown]
  - Aura [Unknown]
  - Visual impairment [Unknown]
  - Neoplasm progression [Unknown]
  - Arthralgia [Unknown]
  - Neck pain [Unknown]
  - Diarrhoea [Unknown]
  - Nausea [Unknown]
